FAERS Safety Report 4743360-4 (Version None)
Quarter: 2005Q3

REPORT INFORMATION
  Report Type: 
  Country: None (occurrence: None)
  Receive Date: 20050809
  Receipt Date: 20050729
  Transmission Date: 20060218
  Serious: Yes (Other)
  Sender: FDA-Public Use
  Company Number: 2005109652

PATIENT
  Age: 77 Year
  Sex: Male
  Weight: 110.6777 kg

DRUGS (9)
  1. ZOLOFT [Suspect]
     Indication: ANXIETY
     Dosage: 25 MG (25 MG, 1 IN 1 D), UNKNOWN
     Dates: start: 20050706
  2. ALPRAZOLAM [Suspect]
     Indication: ANXIETY
     Dosage: 0.5 MG (0.5 MG, 1 IN 1 D)
     Dates: start: 20050706
  3. HYDROXYZINE HCL [Suspect]
     Indication: ANXIETY
     Dates: start: 20050620, end: 20050101
  4. METOPROLOL TARTRATE [Suspect]
     Indication: ILL-DEFINED DISORDER
     Dates: end: 20050719
  5. ZOCOR [Concomitant]
  6. COUMADIN [Concomitant]
  7. ATACAND [Concomitant]
  8. PREVACID [Concomitant]
  9. ATENOLOL [Concomitant]

REACTIONS (9)
  - ANOREXIA [None]
  - ANXIETY [None]
  - ASTHENIA [None]
  - DIVERTICULITIS [None]
  - DRUG INEFFECTIVE [None]
  - ERUCTATION [None]
  - LOW DENSITY LIPOPROTEIN INCREASED [None]
  - NAUSEA [None]
  - WEIGHT DECREASED [None]
